FAERS Safety Report 5724574-3 (Version None)
Quarter: 2008Q2

REPORT INFORMATION
  Report Type: 
  Country: None (occurrence: None)
  Receive Date: 20080428
  Receipt Date: 20080117
  Transmission Date: 20081010
  Serious: Yes (Hospitalization)
  Sender: FDA-Public Use
  Company Number: 79841

PATIENT
  Age: 74 Year
  Sex: Male

DRUGS (15)
  1. ALVESCO [Suspect]
     Indication: ASTHMA
     Dosage: DAILY DOSE 2 PUFF INHALATION
     Route: 055
     Dates: start: 20071228
  2. BETAMETHASONE SODIUM PHOSPHATE [Suspect]
     Indication: ASTHMA
     Dosage: 2 MG INTRAVENOUS
     Route: 042
     Dates: start: 20071116
  3. QVAR [Concomitant]
  4. TERDAN-L [Concomitant]
  5. PRANLUKAST (PRANLUKAST) [Concomitant]
  6. ZYRTEC [Concomitant]
  7. DIGOXIN [Concomitant]
  8. LACALMIN [Concomitant]
  9. FUROSEMIDE [Concomitant]
  10. PELANCOCIN [Concomitant]
  11. NICHIPHYLLIN [Concomitant]
  12. BROMHEXINE (BROMHEXINE) [Concomitant]
  13. ACTAMIN [Concomitant]
  14. NOLPORT [Concomitant]
  15. HOMOCK [Concomitant]

REACTIONS (1)
  - HERPES ZOSTER [None]
